FAERS Safety Report 12741874 (Version 2)
Quarter: 2016Q4

REPORT INFORMATION
  Report Type: Report from Study
  Country: JP (occurrence: JP)
  Receive Date: 20160914
  Receipt Date: 20161108
  Transmission Date: 20170207
  Serious: Yes (Death)
  Sender: FDA-Public Use
  Company Number: JP-UCBSA-2016034523

PATIENT
  Age: 62 Year
  Sex: Male
  Weight: 69 kg

DRUGS (6)
  1. FOSPHENYTOIN SODIUM. [Concomitant]
     Active Substance: FOSPHENYTOIN SODIUM
     Indication: SIMPLE PARTIAL SEIZURES
     Dosage: 750 MG, ONCE DAILY (QD)
     Route: 042
     Dates: start: 20151228, end: 20151228
  2. LEVETIRACETAM. [Suspect]
     Active Substance: LEVETIRACETAM
     Indication: SIMPLE PARTIAL SEIZURES
     Dosage: 500 MG, ONCE DAILY (QD)
     Route: 041
     Dates: start: 20151228, end: 20151228
  3. GLYCEREB [Concomitant]
     Indication: PRODUCT USED FOR UNKNOWN INDICATION
     Dosage: 200 MG, 2X/DAY (BID)
     Route: 042
     Dates: start: 20151231, end: 20151231
  4. LEVETIRACETAM. [Suspect]
     Active Substance: LEVETIRACETAM
     Dosage: 500 MG, 2X/DAY (BID)
     Route: 041
     Dates: start: 20151229, end: 20151231
  5. SULBACILLIN [Concomitant]
     Active Substance: AMPICILLIN SODIUM\SULBACTAM SODIUM
     Indication: PRODUCT USED FOR UNKNOWN INDICATION
     Dosage: 1.5 G, 2X/DAY (BID)
     Route: 042
     Dates: start: 20151230, end: 20151231
  6. LEVETIRACETAM. [Concomitant]
     Active Substance: LEVETIRACETAM
     Indication: SIMPLE PARTIAL SEIZURES
     Dosage: 1000 MG, 2X/DAY (BID)
     Route: 048
     Dates: start: 20130415, end: 20151226

REACTIONS (1)
  - Brain neoplasm [Fatal]

NARRATIVE: CASE EVENT DATE: 20160101
